FAERS Safety Report 19093143 (Version 1)
Quarter: 2021Q2

REPORT INFORMATION
  Report Type: Report from Study
  Country: None (occurrence: US)
  Receive Date: 20210405
  Receipt Date: 20210405
  Transmission Date: 20210717
  Serious: Yes (Other)
  Sender: FDA-Public Use
  Company Number: US-ABBVIE-21K-163-3744229-00

PATIENT
  Age: 75 Year
  Sex: Male
  Weight: 76.27 kg

DRUGS (29)
  1. MELOXICAM. [Concomitant]
     Active Substance: MELOXICAM
     Indication: PROSTATITIS
  2. SUDAFED [Concomitant]
     Active Substance: PSEUDOEPHEDRINE HYDROCHLORIDE
     Indication: HYPERSENSITIVITY
  3. DALIRESP [Concomitant]
     Active Substance: ROFLUMILAST
     Indication: SECRETION DISCHARGE
  4. KLOR?CON [Concomitant]
     Active Substance: POTASSIUM CHLORIDE
     Indication: MINERAL SUPPLEMENTATION
  5. MUCINEX [Concomitant]
     Active Substance: GUAIFENESIN
     Indication: HYPERSENSITIVITY
  6. COVID?19 VACCINE NOS. [Concomitant]
     Active Substance: COVID-19 VACCINE NOS
     Indication: COVID-19 IMMUNISATION
     Dosage: MANUFACTURER: PFIZER
     Route: 030
     Dates: start: 20210122, end: 20210122
  7. ASPIRIN. [Concomitant]
     Active Substance: ASPIRIN
     Indication: HYPERTENSION
  8. PROAIR HFA [Concomitant]
     Active Substance: ALBUTEROL SULFATE
     Indication: HYPERSENSITIVITY
  9. IMODIUM [Concomitant]
     Active Substance: LOPERAMIDE HYDROCHLORIDE
     Indication: DIARRHOEA
  10. VITAMIN D3 [Concomitant]
     Active Substance: CHOLECALCIFEROL
     Indication: VITAMIN SUPPLEMENTATION
  11. CREON [Suspect]
     Active Substance: PANCRELIPASE AMYLASE\PANCRELIPASE LIPASE\PANCRELIPASE PROTEASE
     Indication: PANCREATIC FAILURE
     Dosage: ONE CAPSULE PER MEAL AND ONE CAPSULE PER SNACK
     Route: 048
     Dates: start: 20200930, end: 202102
  12. CREON [Suspect]
     Active Substance: PANCRELIPASE AMYLASE\PANCRELIPASE LIPASE\PANCRELIPASE PROTEASE
     Indication: DIARRHOEA
  13. COVID?19 VACCINE NOS. [Concomitant]
     Active Substance: COVID-19 VACCINE NOS
     Dosage: MANUFACTURER: PFIZER
     Route: 030
     Dates: start: 20210211, end: 20210211
  14. OMEPRAZOLE. [Concomitant]
     Active Substance: OMEPRAZOLE
     Indication: GASTRIC DISORDER
  15. MULTIVITAMINS [Concomitant]
     Active Substance: VITAMINS
     Indication: SUPPLEMENTATION THERAPY
  16. ALFUZOSIN [Concomitant]
     Active Substance: ALFUZOSIN
     Indication: PROSTATOMEGALY
  17. CREON [Suspect]
     Active Substance: PANCRELIPASE AMYLASE\PANCRELIPASE LIPASE\PANCRELIPASE PROTEASE
     Indication: ANAL INCONTINENCE
  18. DALIRESP [Concomitant]
     Active Substance: ROFLUMILAST
     Indication: HYPERSENSITIVITY
  19. GABAPENTIN. [Concomitant]
     Active Substance: GABAPENTIN
     Indication: NERVOUSNESS
  20. LASIX [Concomitant]
     Active Substance: FUROSEMIDE
     Indication: FLUID RETENTION
  21. LISINOPRIL. [Concomitant]
     Active Substance: LISINOPRIL
     Indication: HYPERTENSION
  22. TIZANIDINE. [Concomitant]
     Active Substance: TIZANIDINE
     Indication: SLEEP DISORDER
  23. TRAZODONE [Concomitant]
     Active Substance: TRAZODONE HYDROCHLORIDE
     Indication: SLEEP DISORDER
  24. CREON [Suspect]
     Active Substance: PANCRELIPASE AMYLASE\PANCRELIPASE LIPASE\PANCRELIPASE PROTEASE
     Indication: ABDOMINAL DISCOMFORT
     Dosage: TWO CAPSULES WITH EVERY MEAL AND ONE CAPSULE WITH EVERY SNACK
     Route: 048
     Dates: start: 202102
  25. ATORVASTATIN [Concomitant]
     Active Substance: ATORVASTATIN
     Indication: BLOOD CHOLESTEROL INCREASED
  26. FLUTICASONE. [Concomitant]
     Active Substance: FLUTICASONE
     Indication: SEASONAL ALLERGY
  27. MIRTAZAPIN [Concomitant]
     Active Substance: MIRTAZAPINE
     Indication: SLEEP DISORDER
  28. GLUCOSAMINE [Concomitant]
     Active Substance: GLUCOSAMINE
     Indication: SUPPLEMENTATION THERAPY
  29. CALCIUM [Concomitant]
     Active Substance: CALCIUM
     Indication: SUPPLEMENTATION THERAPY

REACTIONS (12)
  - Abdominal discomfort [Not Recovered/Not Resolved]
  - Gastric haemorrhage [Not Recovered/Not Resolved]
  - Polyp [Recovered/Resolved]
  - Flatulence [Not Recovered/Not Resolved]
  - Diverticulitis [Not Recovered/Not Resolved]
  - Adenoma benign [Recovered/Resolved]
  - Unevaluable event [Not Recovered/Not Resolved]
  - Back pain [Not Recovered/Not Resolved]
  - Burning sensation [Not Recovered/Not Resolved]
  - Epigastric discomfort [Not Recovered/Not Resolved]
  - Intestinal polyp [Recovered/Resolved]
  - Diverticulitis [Recovered/Resolved]

NARRATIVE: CASE EVENT DATE: 202009
